FAERS Safety Report 8950134 (Version 1)
Quarter: 2012Q4

REPORT INFORMATION
  Report Type: 
  Country: US (occurrence: US)
  Receive Date: 20121205
  Receipt Date: 20121205
  Transmission Date: 20130627
  Serious: No
  Sender: FDA-Public Use
  Company Number: US-ASTELLAS-2012US003090

PATIENT
  Age: 79 Year
  Sex: Female

DRUGS (2)
  1. TARCEVA [Suspect]
     Indication: PRODUCT USED FOR UNKNOWN INDICATION
     Dosage: UNK
     Route: 048
     Dates: end: 201112
  2. TARCEVA [Suspect]
     Dosage: 100 mg, UID/QD
     Route: 048
     Dates: start: 201112

REACTIONS (2)
  - Dysphagia [Unknown]
  - Rash [Unknown]
